FAERS Safety Report 6488834-3 (Version None)
Quarter: 2009Q4

REPORT INFORMATION
  Report Type: 
  Country: None (occurrence: None)
  Receive Date: 20091210
  Receipt Date: 20091207
  Transmission Date: 20100525
  Serious: Yes (Other)
  Sender: FDA-Public Use
  Company Number: US-ROCHE-673143

PATIENT
  Age: 76 Year
  Sex: Male

DRUGS (6)
  1. BEVACIZUMAB [Suspect]
     Dosage: INJECTIONS WITHOUT ANY COMPLICATION
     Route: 031
  2. BEVACIZUMAB [Suspect]
     Dosage: BILATERAL INJECTIONS
     Route: 031
  3. BEVACIZUMAB [Suspect]
     Dosage: LEFT EYE INJECTED
     Route: 031
  4. RANIBIZUMAB [Suspect]
     Dosage: ONE INJECTION IN RIGHT EYE, FOLLWED BY BILATERAL INJECTION ON SAME DAY
     Route: 031
  5. RANIBIZUMAB [Suspect]
     Route: 031
  6. POVIDONE IODINE [Concomitant]

REACTIONS (1)
  - PSEUDOENDOPHTHALMITIS [None]
